FAERS Safety Report 23708903 (Version 1)
Quarter: 2024Q2

REPORT INFORMATION
  Report Type: Spontaneous
  Country: DE (occurrence: DE)
  Receive Date: 20240404
  Receipt Date: 20240404
  Transmission Date: 20240715
  Serious: Yes (Other)
  Sender: FDA-Public Use
  Company Number: DE-009507513-2403DEU008013

PATIENT
  Age: 72 Year
  Sex: Male

DRUGS (6)
  1. KEYTRUDA [Suspect]
     Active Substance: PEMBROLIZUMAB
     Indication: Metastases to liver
     Dosage: ONE CYCLE (D1)
     Route: 065
     Dates: start: 20240208
  2. KEYTRUDA [Suspect]
     Active Substance: PEMBROLIZUMAB
     Indication: Transitional cell carcinoma metastatic
  3. METHYLPREDNISOLONE [Suspect]
     Active Substance: METHYLPREDNISOLONE
     Indication: Transitional cell carcinoma metastatic
     Dosage: UNK
     Route: 065
  4. METHYLPREDNISOLONE [Suspect]
     Active Substance: METHYLPREDNISOLONE
     Indication: Metastases to liver
  5. PADCEV [Suspect]
     Active Substance: ENFORTUMAB VEDOTIN-EJFV
     Indication: Transitional cell carcinoma metastatic
     Dosage: ONE CYCLE (D1,8)
     Route: 065
     Dates: start: 202402
  6. PADCEV [Suspect]
     Active Substance: ENFORTUMAB VEDOTIN-EJFV
     Indication: Metastases to liver

REACTIONS (8)
  - Rhabdomyolysis [Not Recovered/Not Resolved]
  - Myositis [Not Recovered/Not Resolved]
  - Product use issue [Unknown]
  - Immune-mediated adverse reaction [Not Recovered/Not Resolved]
  - Troponin increased [Unknown]
  - Dysphagia [Not Recovered/Not Resolved]
  - Dysphonia [Not Recovered/Not Resolved]
  - Therapeutic product effect incomplete [Unknown]

NARRATIVE: CASE EVENT DATE: 20240101
